FAERS Safety Report 5351372-5 (Version None)
Quarter: 2007Q2

REPORT INFORMATION
  Report Type: 
  Country: None (occurrence: None)
  Receive Date: 20070608
  Receipt Date: 20070528
  Transmission Date: 20071010
  Serious: Yes (Other)
  Sender: FDA-Public Use
  Company Number: CA-PFIZER INC-2007045458

PATIENT
  Sex: Female

DRUGS (7)
  1. LIPITOR [Suspect]
     Route: 048
  2. CRESTOR [Suspect]
     Route: 048
  3. ALTACE [Concomitant]
  4. BISOPROLOL FUMARATE [Concomitant]
  5. PLAVIX [Concomitant]
  6. ASPIRIN [Concomitant]
  7. PARIET [Concomitant]

REACTIONS (9)
  - BLINDNESS UNILATERAL [None]
  - DEPRESSION [None]
  - GASTROOESOPHAGEAL REFLUX DISEASE [None]
  - HEADACHE [None]
  - MIGRAINE [None]
  - MOOD SWINGS [None]
  - MYOCARDIAL INFARCTION [None]
  - NAUSEA [None]
  - VISUAL DISTURBANCE [None]
